FAERS Safety Report 13755478 (Version 3)
Quarter: 2017Q3

REPORT INFORMATION
  Report Type: Spontaneous
  Country: BR (occurrence: BR)
  Receive Date: 20170714
  Receipt Date: 20170901
  Transmission Date: 20171127
  Serious: Yes (Other)
  Sender: FDA-Public Use
  Company Number: BR-009507513-1707BRA002367

PATIENT
  Age: 33 Year
  Sex: Female
  Weight: 64 kg

DRUGS (3)
  1. NUVARING [Interacting]
     Active Substance: ETHINYL ESTRADIOL\ETONOGESTREL
     Indication: GENERAL SYMPTOM
     Dosage: VAGINAL RING, A PAUSE EVERY 3 CYCLES OF USE (63 DAY OF USE)
     Route: 067
     Dates: start: 2015
  2. NUVARING [Suspect]
     Active Substance: ETHINYL ESTRADIOL\ETONOGESTREL
     Indication: MUSCLE SPASMS
     Dosage: VAGINAL RING, 3 WEEKS WITHOUT PAUSE
     Route: 067
     Dates: start: 2015
  3. ISONIAZID (+) PYRAZINAMIDE (+) RIFAMPIN [Interacting]
     Active Substance: ISONIAZID\PYRAZINAMIDE\RIFAMPIN
     Dosage: UNK
     Dates: start: 20170418

REACTIONS (8)
  - Tuberculosis [Recovered/Resolved]
  - Drug interaction [Unknown]
  - Incorrect drug administration duration [Unknown]
  - Drug effective for unapproved indication [Not Recovered/Not Resolved]
  - Menstruation delayed [Recovered/Resolved]
  - General symptom [Unknown]
  - Menstruation irregular [Not Recovered/Not Resolved]
  - Product use in unapproved indication [Unknown]

NARRATIVE: CASE EVENT DATE: 2015
